FAERS Safety Report 9416499 (Version 1)
Quarter: 2013Q3

REPORT INFORMATION
  Report Type: Spontaneous
  Country: US (occurrence: None)
  Receive Date: 20130719
  Receipt Date: 20130719
  Transmission Date: 20140515
  Serious: Yes (Other)
  Sender: FDA-Public Use
  Company Number: 2013P1011918

PATIENT
  Age: 65 Year
  Sex: Male

DRUGS (2)
  1. INFUMORPH [Suspect]
     Indication: SPINAL PAIN
  2. INFUMORPH [Suspect]
     Indication: BACK PAIN

REACTIONS (1)
  - Medical device discomfort [None]
